FAERS Safety Report 13126310 (Version 6)
Quarter: 2019Q1

REPORT INFORMATION
  Report Type: Spontaneous
  Country: US (occurrence: US)
  Receive Date: 20170118
  Receipt Date: 20190115
  Transmission Date: 20190417
  Serious: Yes (Hospitalization, Other)
  Sender: FDA-Public Use
  Company Number: US-ASTRAZENECA-2017SE03676

PATIENT
  Age: 16053 Day
  Sex: Male
  Weight: 158.8 kg

DRUGS (33)
  1. NEXIUM [Suspect]
     Active Substance: ESOMEPRAZOLE MAGNESIUM
     Route: 048
     Dates: start: 20130720
  2. AZITHROMYCIN ANHYDROUS. [Concomitant]
     Active Substance: AZITHROMYCIN ANHYDROUS
  3. PREDNISONE. [Concomitant]
     Active Substance: PREDNISONE
  4. PANTOPRAZOLE [Concomitant]
     Active Substance: PANTOPRAZOLE
  5. OXYCONTIN [Concomitant]
     Active Substance: OXYCODONE HYDROCHLORIDE
     Dosage: 30.0MG UNKNOWN
     Route: 048
     Dates: start: 20140923
  6. ASPIRIN. [Concomitant]
     Active Substance: ASPIRIN
     Route: 048
  7. COLCHICINE. [Concomitant]
     Active Substance: COLCHICINE
     Route: 048
     Dates: start: 20161121
  8. NEXIUM [Suspect]
     Active Substance: ESOMEPRAZOLE MAGNESIUM
     Dosage: 40.0MG UNKNOWN
     Route: 048
     Dates: start: 20140811
  9. ATORVASTATIN [Concomitant]
     Active Substance: ATORVASTATIN
     Route: 048
     Dates: start: 20161107
  10. OXYCODONE [Concomitant]
     Active Substance: OXYCODONE
     Route: 048
     Dates: start: 20161116
  11. ALLOPURINOL. [Concomitant]
     Active Substance: ALLOPURINOL
  12. NEXIUM [Suspect]
     Active Substance: ESOMEPRAZOLE MAGNESIUM
     Dosage: 20.0MG UNKNOWN
     Route: 048
     Dates: start: 20171023
  13. NEXIUM [Suspect]
     Active Substance: ESOMEPRAZOLE MAGNESIUM
     Dosage: UNKNOWN
     Route: 048
     Dates: start: 20170209
  14. HUMULIN R [Concomitant]
     Active Substance: INSULIN HUMAN
     Dosage: 600.0MG UNKNOWN
     Dates: start: 20140918
  15. TIZANIDINE. [Concomitant]
     Active Substance: TIZANIDINE
     Route: 048
     Dates: start: 20160411
  16. LYRICA [Concomitant]
     Active Substance: PREGABALIN
  17. KETOROLAC [Concomitant]
     Active Substance: KETOROLAC\KETOROLAC TROMETHAMINE
  18. AUGMENTIN [Concomitant]
     Active Substance: AMOXICILLIN\CLAVULANATE POTASSIUM
     Dosage: 600.0MG UNKNOWN
     Dates: start: 20140918
  19. ULORIC [Concomitant]
     Active Substance: FEBUXOSTAT
     Route: 048
     Dates: start: 20161212
  20. MELOXICAM. [Concomitant]
     Active Substance: MELOXICAM
  21. OXYCONTIN [Concomitant]
     Active Substance: OXYCODONE HYDROCHLORIDE
     Dosage: UNKNOWN
     Route: 048
     Dates: start: 20160411
  22. GABAPENTIN. [Concomitant]
     Active Substance: GABAPENTIN
     Dosage: 600.0MG UNKNOWN
     Route: 048
     Dates: start: 20140918
  23. ATORVASTATIN [Concomitant]
     Active Substance: ATORVASTATIN
     Route: 048
     Dates: start: 20140918
  24. FUROSEMIDE. [Concomitant]
     Active Substance: FUROSEMIDE
  25. AMOXICILLIN. [Concomitant]
     Active Substance: AMOXICILLIN
     Route: 048
     Dates: start: 20160420
  26. BACLOFEN. [Concomitant]
     Active Substance: BACLOFEN
  27. NEXIUM [Suspect]
     Active Substance: ESOMEPRAZOLE MAGNESIUM
     Route: 048
     Dates: start: 20110720
  28. TORSEMIDE. [Concomitant]
     Active Substance: TORSEMIDE
     Dates: start: 20140918
  29. QUINAPRIL. [Concomitant]
     Active Substance: QUINAPRIL
     Dates: start: 20140918
  30. MORPHINE [Concomitant]
     Active Substance: MORPHINE
  31. LORAZEPAM. [Concomitant]
     Active Substance: LORAZEPAM
     Dosage: 1.0MG UNKNOWN
     Route: 048
     Dates: start: 20140918
  32. CLONIDINE. [Concomitant]
     Active Substance: CLONIDINE
     Route: 048
  33. CELECOXIB. [Concomitant]
     Active Substance: CELECOXIB
     Route: 048
     Dates: start: 20161121

REACTIONS (5)
  - Renal failure [Unknown]
  - Renal impairment [Unknown]
  - Renal injury [Unknown]
  - Chronic kidney disease [Unknown]
  - Acute kidney injury [Recovered/Resolved]

NARRATIVE: CASE EVENT DATE: 20140511
